FAERS Safety Report 16254694 (Version 1)
Quarter: 2019Q2

REPORT INFORMATION
  Report Type: Spontaneous
  Country: GB (occurrence: GB)
  Receive Date: 20190430
  Receipt Date: 20190430
  Transmission Date: 20190711
  Serious: Yes (Hospitalization)
  Sender: FDA-Public Use
  Company Number: GB-ACCORD-124890

PATIENT
  Age: 65 Year
  Sex: Male

DRUGS (6)
  1. TAPENTADOL [Concomitant]
     Active Substance: TAPENTADOL
  2. AMLODIPINE [Concomitant]
     Active Substance: AMLODIPINE BESYLATE
  3. QUININE [Concomitant]
     Active Substance: QUININE
  4. IBUPROFEN. [Concomitant]
     Active Substance: IBUPROFEN
  5. SIMVASTATIN. [Suspect]
     Active Substance: SIMVASTATIN
     Indication: PRODUCT USED FOR UNKNOWN INDICATION
  6. MIRTAZAPINE. [Concomitant]
     Active Substance: MIRTAZAPINE

REACTIONS (1)
  - Blood creatine phosphokinase increased [Unknown]
